FAERS Safety Report 9887379 (Version 2)
Quarter: 2014Q1

REPORT INFORMATION
  Report Type: Spontaneous
  Country: US (occurrence: US)
  Receive Date: 20140211
  Receipt Date: 20140211
  Transmission Date: 20141002
  Serious: Yes (Other)
  Sender: FDA-Public Use
  Company Number: US-BEH-2012032871

PATIENT
  Age: 55 Year
  Sex: Female
  Weight: 51 kg

DRUGS (23)
  1. PRIVIGEN [Suspect]
     Indication: IMMUNODEFICIENCY COMMON VARIABLE
     Dosage: OVER 4 HOURS, PER MANUFACTURER^S RECOMMENDATIONS AS TOLERATED
     Route: 042
     Dates: start: 20120713, end: 20120713
  2. PRIVIGEN [Suspect]
     Dosage: OVER 4 HOURS, PER MANUFACTURER^S RECOMMENDATIONS AS TOLERATED
     Route: 042
     Dates: start: 20120713, end: 20120713
  3. PRIVIGEN [Suspect]
     Dosage: 16 ML PER HOUR FOR 15 MINUTES, THEN 51 ML PER HOUR FOR 289 MINUTES
     Route: 042
     Dates: start: 20120823, end: 20120823
  4. PRIVIGEN [Suspect]
     Dosage: 16 ML PER HOUR FOR 15 MINUTES, THEN 51 ML PER HOUR FOR 289 MINUTES
     Route: 042
     Dates: start: 20120823, end: 20120823
  5. PRIVIGEN [Suspect]
     Route: 042
  6. PRIVIGEN [Suspect]
     Route: 042
  7. NORMAL SALINE [Concomitant]
  8. SODIUM CHLORIDE [Concomitant]
  9. EPI-PEN [Concomitant]
     Indication: PREMEDICATION
  10. OXYGEN [Concomitant]
  11. BENADRYL [Concomitant]
  12. CYANOCOBALAMIN [Concomitant]
  13. CONCERTA [Concomitant]
  14. SONATA [Concomitant]
  15. VITAMIN B12 [Concomitant]
  16. ACETAMINOPHEN [Concomitant]
  17. ALBUTEROL SULFATE [Concomitant]
  18. AZITHROMYCIN [Concomitant]
  19. MEPRON [Concomitant]
  20. ADVAIR [Concomitant]
  21. PYRIDOSTIGMINE [Concomitant]
  22. ZITHROMAX [Concomitant]
  23. PRILOSEC [Concomitant]

REACTIONS (4)
  - Lung infection [Unknown]
  - Respiratory tract infection [Unknown]
  - Headache [Unknown]
  - Headache [Recovered/Resolved]
